FAERS Safety Report 6305989-1 (Version None)
Quarter: 2009Q3

REPORT INFORMATION
  Report Type: 
  Country: None (occurrence: None)
  Receive Date: 20090810
  Receipt Date: 20090810
  Transmission Date: 20100115
  Serious: Yes (Other)
  Sender: FDA-Public Use
  Company Number: None

PATIENT
  Sex: Female
  Weight: 68.0396 kg

DRUGS (2)
  1. DENTA-5000-PLUS  1.1 % SODIUM FLUORIDE GROUPE-PARIMA FOR RISING PHAR. [Suspect]
     Indication: DENTAL CARIES
     Dosage: 1/2 TO 3/4 INCH PASTE DAILY DENTAL
     Route: 004
     Dates: start: 20090721, end: 20090806
  2. DENTA-5000-PLUS  1.1 % SODIUM FLUORIDE GROUPE-PARIMA FOR RISING PHAR. [Suspect]
     Indication: PROPHYLAXIS
     Dosage: 1/2 TO 3/4 INCH PASTE DAILY DENTAL
     Route: 004
     Dates: start: 20090721, end: 20090806

REACTIONS (2)
  - PRODUCT QUALITY ISSUE [None]
  - STOMATITIS [None]
